FAERS Safety Report 18426544 (Version 1)
Quarter: 2020Q4

REPORT INFORMATION
  Report Type: Spontaneous
  Country: ES (occurrence: ES)
  Receive Date: 20201026
  Receipt Date: 20201026
  Transmission Date: 20210114
  Serious: Yes (Hospitalization, Other)
  Sender: FDA-Public Use
  Company Number: ES-SHILPA MEDICARE LIMITED-SML-ES-2020-00519

PATIENT
  Age: 73 Year
  Sex: Male
  Weight: 92 kg

DRUGS (4)
  1. GEMCITABINE. [Suspect]
     Active Substance: GEMCITABINE
     Indication: ADJUVANT THERAPY
     Dosage: 2000MG CADA 7 D?AS (1,8,15)
     Route: 042
     Dates: start: 20200729, end: 20200830
  2. OMEPRAZOL AUROVITAS SPAIN [Concomitant]
     Dosage: 20 MG CAPSULAS DURAS GASTRORRESISTENTES EFG , 56 C?PSULAS
     Route: 048
  3. DUOTRAV [Concomitant]
     Active Substance: TIMOLOL MALEATE\TRAVOPROST
     Indication: GLAUCOMA
     Dosage: 40 MICROGRAMOS/ML + 5 MG/ML COLIRIO EN SOLUCION, 1 FRASCO DE 2,5 ML
     Route: 047
  4. CAPECITABINA, UNKNOWN [Suspect]
     Active Substance: CAPECITABINE
     Indication: PRODUCT USED FOR UNKNOWN INDICATION
     Dosage: 1500 MG CADA 12H
     Route: 048
     Dates: start: 20200729, end: 20200830

REACTIONS (1)
  - Cerebellar stroke [Recovering/Resolving]

NARRATIVE: CASE EVENT DATE: 20200830
